FAERS Safety Report 10307104 (Version 2)
Quarter: 2015Q2

REPORT INFORMATION
  Report Type: Spontaneous
  Country: BR (occurrence: BR)
  Receive Date: 20140716
  Receipt Date: 20150420
  Transmission Date: 20150821
  Serious: Yes (Death, Hospitalization, Other)
  Sender: FDA-Public Use
  Company Number: BR-ROCHE-1434543

PATIENT
  Sex: Female
  Weight: 66 kg

DRUGS (1)
  1. HERCEPTIN [Suspect]
     Active Substance: TRASTUZUMAB
     Indication: BREAST CANCER
     Route: 065
     Dates: start: 2007

REACTIONS (5)
  - Bladder neoplasm [Not Recovered/Not Resolved]
  - Breast cancer metastatic [Fatal]
  - Metastases to bone [Not Recovered/Not Resolved]
  - Renal failure [Not Recovered/Not Resolved]
  - Cachexia [Fatal]

NARRATIVE: CASE EVENT DATE: 2007
